FAERS Safety Report 5773893-3 (Version None)
Quarter: 2008Q2

REPORT INFORMATION
  Report Type: 
  Country: None (occurrence: None)
  Receive Date: 20080616
  Receipt Date: 20080609
  Transmission Date: 20081010
  Serious: Yes (Hospitalization)
  Sender: FDA-Public Use
  Company Number: A0732965A

PATIENT
  Sex: Female

DRUGS (18)
  1. ADVAIR DISKUS 100/50 [Suspect]
     Indication: CHRONIC OBSTRUCTIVE PULMONARY DISEASE
     Route: 055
  2. SPIRIVA [Concomitant]
  3. REGULIN [Concomitant]
  4. PROTONIX [Concomitant]
  5. NORVASC [Concomitant]
  6. LEXAPRO [Concomitant]
  7. SINGULAIR [Concomitant]
  8. COMBIVENT [Concomitant]
  9. VITAMIN D [Concomitant]
  10. FLEXERIL [Concomitant]
  11. LUMIGAN [Concomitant]
  12. ALPHAGAN [Concomitant]
  13. AZOPT [Concomitant]
  14. CLARITIN [Concomitant]
  15. NASONEX [Concomitant]
  16. VITAMIN B COMPLEX CAP [Concomitant]
  17. CALCIUM [Concomitant]
  18. NEBULIZER [Concomitant]

REACTIONS (5)
  - DEHYDRATION [None]
  - EPISTAXIS [None]
  - GLAUCOMA [None]
  - PHARMACEUTICAL PRODUCT COMPLAINT [None]
  - SPINAL FRACTURE [None]
